FAERS Safety Report 23368255 (Version 1)
Quarter: 2024Q1

REPORT INFORMATION
  Report Type: Spontaneous
  Country: FR (occurrence: FR)
  Receive Date: 20240105
  Receipt Date: 20240105
  Transmission Date: 20240410
  Serious: Yes (Other)
  Sender: FDA-Public Use
  Company Number: FR-MYLANLABS-2018M1050804

PATIENT
  Age: 32 Year
  Sex: Female

DRUGS (4)
  1. ANASTROZOLE [Suspect]
     Active Substance: ANASTROZOLE
     Indication: Ovarian disorder
     Dosage: UNK
     Route: 065
  2. ANASTROZOLE [Suspect]
     Active Substance: ANASTROZOLE
     Indication: HER2 positive breast cancer
     Dosage: UNK
     Route: 065
  3. TRIPTORELIN [Suspect]
     Active Substance: TRIPTORELIN
     Indication: Ovarian disorder
     Dosage: 11.25 MG, Q3MO
     Route: 030
  4. TRIPTORELIN [Suspect]
     Active Substance: TRIPTORELIN
     Indication: HER2 positive breast cancer
     Dosage: 11.25 MILLIGRAM
     Route: 030

REACTIONS (3)
  - Drug ineffective [Recovered/Resolved]
  - Treatment failure [Unknown]
  - Product use in unapproved indication [Unknown]
